FAERS Safety Report 5573281-9 (Version None)
Quarter: 2007Q4

REPORT INFORMATION
  Report Type: 
  Country: None (occurrence: None)
  Receive Date: 20071224
  Receipt Date: 20071218
  Transmission Date: 20080405
  Serious: Yes (Hospitalization, Other)
  Sender: FDA-Public Use
  Company Number: PHBS2007JP17429

PATIENT
  Age: 59 Year
  Sex: Female

DRUGS (6)
  1. TEGRETOL [Suspect]
     Indication: BIPOLAR I DISORDER
     Dosage: 100 MG, QD
     Route: 048
     Dates: start: 19990401, end: 20070917
  2. SEPAZON [Concomitant]
     Dosage: 1 MG, QD
     Route: 048
     Dates: start: 19990329, end: 20070921
  3. LITHIUM CARBONATE [Suspect]
     Dosage: 200 MG, QD
     Route: 048
     Dates: end: 20070925
  4. CHLORPROMAZINE HCL [Concomitant]
     Dosage: 0.8 G/DAY, 10% POWDER
     Route: 048
     Dates: start: 19990329, end: 20070921
  5. THYRADIN [Concomitant]
     Dates: start: 19990329
  6. AKINETON [Concomitant]
     Dates: start: 19990329

REACTIONS (13)
  - BLOOD ALBUMIN DECREASED [None]
  - BLOOD AMYLASE DECREASED [None]
  - BLOOD CHOLINESTERASE DECREASED [None]
  - BLOOD CREATINE PHOSPHOKINASE INCREASED [None]
  - BLOOD LACTATE DEHYDROGENASE INCREASED [None]
  - C-REACTIVE PROTEIN INCREASED [None]
  - CARDIAC MURMUR [None]
  - ENDOCARDITIS [None]
  - GAMMA-GLUTAMYLTRANSFERASE INCREASED [None]
  - NEUTROPENIA [None]
  - NEUTROPHIL COUNT DECREASED [None]
  - PYREXIA [None]
  - WHITE BLOOD CELL COUNT DECREASED [None]
